FAERS Safety Report 4454811-7 (Version None)
Quarter: 2004Q3

REPORT INFORMATION
  Report Type: 
  Country: None (occurrence: None)
  Receive Date: 20040826
  Receipt Date: 20040511
  Transmission Date: 20050211
  Serious: No
  Sender: FDA-Public Use
  Company Number: 2004US002132

PATIENT
  Age: 82 Year
  Sex: Female

DRUGS (7)
  1. ALOXI [Suspect]
     Indication: PROPHYLAXIS OF NAUSEA AND VOMITING
     Dosage: 0.25 MG, SINGLE; INTRAVENOUS (SEE IMAGE)
     Route: 042
     Dates: start: 20040510, end: 20040510
  2. ALOXI [Suspect]
     Indication: PROPHYLAXIS OF NAUSEA AND VOMITING
     Dosage: 0.25 MG, SINGLE; INTRAVENOUS (SEE IMAGE)
     Route: 042
     Dates: start: 20040524, end: 20040524
  3. DEXAMETHASONE [Concomitant]
  4. SODIUM CHLORIDE [Concomitant]
  5. CAMPTOSAR [Concomitant]
  6. GEMZAR [Concomitant]
  7. AREDIA [Concomitant]

REACTIONS (1)
  - VISION BLURRED [None]
